FAERS Safety Report 13276358 (Version 2)
Quarter: 2017Q1

REPORT INFORMATION
  Report Type: Report from Study
  Country: TH (occurrence: TH)
  Receive Date: 20170228
  Receipt Date: 20170309
  Transmission Date: 20170428
  Serious: Yes (Hospitalization, Other)
  Sender: FDA-Public Use
  Company Number: PHHY2017TH027018

PATIENT
  Age: 58 Year
  Sex: Female

DRUGS (2)
  1. INSULIN [Concomitant]
     Active Substance: INSULIN NOS
     Indication: DIABETES MELLITUS
     Route: 065
  2. PASIREOTIDE [Suspect]
     Active Substance: PASIREOTIDE
     Indication: PITUITARY-DEPENDENT CUSHING^S SYNDROME
     Dosage: 0.6 MG, Q12H
     Route: 058
     Dates: start: 20170127, end: 20170205

REACTIONS (8)
  - Muscle rigidity [Unknown]
  - Pneumonia [Not Recovered/Not Resolved]
  - Loss of consciousness [Unknown]
  - Seizure [Unknown]
  - Confusional state [Unknown]
  - Hypoglycaemia [Not Recovered/Not Resolved]
  - Generalised tonic-clonic seizure [Not Recovered/Not Resolved]
  - Coma [Unknown]
